FAERS Safety Report 9139326 (Version 1)
Quarter: 2013Q1

REPORT INFORMATION
  Report Type: Spontaneous
  Country: US (occurrence: US)
  Receive Date: 20130305
  Receipt Date: 20130305
  Transmission Date: 20140127
  Serious: No
  Sender: FDA-Public Use
  Company Number: PHEH2013US003503

PATIENT
  Sex: Female

DRUGS (13)
  1. TASIGNA [Suspect]
     Indication: CHRONIC MYELOID LEUKAEMIA
     Dosage: 400 MG, BID
     Route: 048
     Dates: start: 20110822
  2. FUROSEMIDE [Concomitant]
     Dosage: UNK
     Route: 048
     Dates: start: 20110502
  3. MAGNESIUM OXIDE [Concomitant]
     Dosage: UNK
     Route: 048
     Dates: start: 20110608
  4. POTASSIUM CHLORIDE [Concomitant]
     Dosage: UNK
     Route: 048
     Dates: start: 20110502
  5. PROCHLORPERAZINE MALEATE [Concomitant]
     Route: 048
  6. TRIAMCINOLONE ACETONIDE [Concomitant]
  7. POTASSIUM CHLORIDE [Concomitant]
  8. CALCIUM CITRATE [Concomitant]
     Dosage: 630 MG, UNK
  9. FERROUS GLUCONATE [Concomitant]
     Route: 048
  10. GLUCOPHAGE [Concomitant]
     Dosage: 500 MG, DAILY
     Route: 048
     Dates: start: 20130111
  11. GLUCOSAMINE CHONDROITIN [Concomitant]
     Dosage: 1 DF, DAILY
     Route: 048
  12. LASIX [Concomitant]
     Dosage: 20 MG, DAILY
     Route: 048
     Dates: start: 20110822
  13. WOMEN^S MULTI [Concomitant]
     Dosage: 1 DF, DAILY
     Route: 048

REACTIONS (1)
  - Rash [Recovering/Resolving]
